FAERS Safety Report 23716970 (Version 1)
Quarter: 2024Q2

REPORT INFORMATION
  Report Type: Spontaneous
  Country: CN (occurrence: CN)
  Receive Date: 20240408
  Receipt Date: 20240408
  Transmission Date: 20240716
  Serious: Yes (Other)
  Sender: FDA-Public Use
  Company Number: CN-SA-SAC20240403001748

PATIENT
  Age: 14 Year
  Sex: Male
  Weight: 40 kg

DRUGS (1)
  1. ZOLPIDEM TARTRATE [Suspect]
     Active Substance: ZOLPIDEM TARTRATE
     Indication: Sleep disorder
     Dosage: 7 DF, QD
     Route: 048
     Dates: start: 20240317, end: 20240317

REACTIONS (4)
  - Mental fatigue [Recovering/Resolving]
  - Dizziness [Recovering/Resolving]
  - Lethargy [Recovering/Resolving]
  - Headache [Recovering/Resolving]

NARRATIVE: CASE EVENT DATE: 20240317
